FAERS Safety Report 14113472 (Version 1)
Quarter: 2017Q4

REPORT INFORMATION
  Report Type: Spontaneous
  Country: US (occurrence: US)
  Receive Date: 20171022
  Receipt Date: 20171022
  Transmission Date: 20180321
  Serious: Yes (Other)
  Sender: FDA-Public Use
  Company Number: None

PATIENT
  Age: 61 Year
  Sex: Male
  Weight: 70.65 kg

DRUGS (10)
  1. METFORMIN [Concomitant]
     Active Substance: METFORMIN HYDROCHLORIDE
  2. SLEEP AID [Concomitant]
     Active Substance: DIPHENHYDRAMINE HYDROCHLORIDE\DOXYLAMINE SUCCINATE
  3. TRULICITY [Suspect]
     Active Substance: DULAGLUTIDE
     Indication: TYPE 2 DIABETES MELLITUS
     Dosage: ?          QUANTITY:1 INJECTION(S);OTHER FREQUENCY:ONCE WEEKLY;?
     Route: 058
     Dates: start: 20171016
  4. LISINOPRIL. [Concomitant]
     Active Substance: LISINOPRIL
  5. ATORVASTATIN [Concomitant]
     Active Substance: ATORVASTATIN
  6. LANTUS [Concomitant]
     Active Substance: INSULIN GLARGINE
  7. TAMSULOSIN [Concomitant]
     Active Substance: TAMSULOSIN
  8. METROPOLOL [Concomitant]
     Active Substance: METOPROLOL
  9. ASPIRI [Concomitant]
  10. NON-DROWSY ALLERGY [Concomitant]

REACTIONS (8)
  - Cold sweat [None]
  - Flushing [None]
  - Dehydration [None]
  - Asthenia [None]
  - Chills [None]
  - Diarrhoea [None]
  - Blood glucose decreased [None]
  - Hyperhidrosis [None]

NARRATIVE: CASE EVENT DATE: 20171022
